FAERS Safety Report 24733540 (Version 1)
Quarter: 2024Q4

REPORT INFORMATION
  Report Type: Spontaneous
  Country: US (occurrence: US)
  Receive Date: 20241213
  Receipt Date: 20241213
  Transmission Date: 20250114
  Serious: No
  Sender: NOVO NORDISK
  Company Number: US-NOVOPROD-1165478

PATIENT
  Sex: Female

DRUGS (1)
  1. LEVEMIR [Suspect]
     Active Substance: INSULIN DETEMIR
     Indication: Type 1 diabetes mellitus
     Dosage: 50 IU, QD (BED TIME)
     Route: 058
     Dates: start: 20231219, end: 20240109

REACTIONS (6)
  - Pain [Recovered/Resolved]
  - Injection site abscess [Recovering/Resolving]
  - Pruritus [Recovered/Resolved]
  - Injection site urticaria [Recovered/Resolved]
  - Blood glucose increased [Recovered/Resolved]
  - Injection site mass [Recovered/Resolved]

NARRATIVE: CASE EVENT DATE: 20231220
